FAERS Safety Report 25335353 (Version 1)
Quarter: 2025Q2

REPORT INFORMATION
  Report Type: Spontaneous
  Country: US (occurrence: US)
  Receive Date: 20250520
  Receipt Date: 20250520
  Transmission Date: 20250716
  Serious: Yes (Other)
  Sender: QILU PHARMACEUTICAL (HAINAN) CO., LTD.
  Company Number: US-QILU PHARMACEUTICAL (HAINAN) CO.  LTD.-QLH-000045-2025

PATIENT
  Age: 38 Year
  Sex: Female

DRUGS (4)
  1. OXALIPLATIN [Suspect]
     Active Substance: OXALIPLATIN
     Indication: Hepatocellular carcinoma
     Route: 065
  2. OXALIPLATIN [Suspect]
     Active Substance: OXALIPLATIN
     Indication: Peritoneal carcinoma metastatic
  3. GEMCITABINE [Concomitant]
     Active Substance: GEMCITABINE
     Route: 065
  4. GEMCITABINE [Concomitant]
     Active Substance: GEMCITABINE

REACTIONS (3)
  - Neuropathy peripheral [Recovered/Resolved]
  - Peroneal nerve palsy [Recovered/Resolved]
  - Drug effective for unapproved indication [Unknown]
